FAERS Safety Report 20828057 (Version 1)
Quarter: 2022Q2

REPORT INFORMATION
  Report Type: Spontaneous
  Country: US (occurrence: US)
  Receive Date: 20220513
  Receipt Date: 20220513
  Transmission Date: 20220721
  Serious: No
  Sender: FDA-Public Use
  Company Number: US-PFIZER INC-202200617781

PATIENT
  Age: 47 Year
  Sex: Female
  Weight: 90.72 kg

DRUGS (1)
  1. XELJANZ [Suspect]
     Active Substance: TOFACITINIB CITRATE
     Indication: Alopecia
     Dosage: 5 MG, 1X/DAY (DAILY, 5MG, ORALLY, A LITTLE TABLET, TOOK AT BEDTIME)
     Route: 048

REACTIONS (3)
  - COVID-19 [Unknown]
  - Feeling abnormal [Unknown]
  - Off label use [Unknown]
